FAERS Safety Report 21602376 (Version 2)
Quarter: 2022Q4

REPORT INFORMATION
  Report Type: Spontaneous
  Country: CH (occurrence: CH)
  Receive Date: 20221116
  Receipt Date: 20221215
  Transmission Date: 20230113
  Serious: No
  Sender: FDA-Public Use
  Company Number: CH-UCBSA-2022065668

PATIENT

DRUGS (1)
  1. NEUPRO [Suspect]
     Active Substance: ROTIGOTINE
     Indication: Product used for unknown indication
     Dosage: STRENGTH:4MG/24H
     Route: 062

REACTIONS (1)
  - Product adhesion issue [Unknown]
